FAERS Safety Report 12389608 (Version 4)
Quarter: 2017Q1

REPORT INFORMATION
  Report Type: Report from Study
  Country: CA (occurrence: CA)
  Receive Date: 20160520
  Receipt Date: 20170109
  Transmission Date: 20170428
  Serious: Yes (Other)
  Sender: FDA-Public Use
  Company Number: CA-PFIZER INC-2016253549

PATIENT
  Age: 35 Year
  Sex: Female

DRUGS (9)
  1. NORVASC [Concomitant]
     Active Substance: AMLODIPINE BESYLATE
     Dosage: 2.5 MG, UNK
  2. PANTOLOC [Suspect]
     Active Substance: PANTOPRAZOLE SODIUM
     Indication: GASTROOESOPHAGEAL REFLUX DISEASE
     Dosage: 40 MG, QD
     Route: 048
     Dates: start: 201406
  3. ENTYVIO [Suspect]
     Active Substance: VEDOLIZUMAB
     Dosage: 300 MG, CYCLIC(Q4WEEKS )
     Route: 042
     Dates: start: 20160818, end: 20161213
  4. VITAMIN B 12 NOS [Concomitant]
     Dosage: UNK, MONTHLY
     Route: 042
  5. IRON [Concomitant]
     Active Substance: IRON
     Dosage: UNK
     Route: 042
  6. HYDROCHLOROTHIAZIDE. [Concomitant]
     Active Substance: HYDROCHLOROTHIAZIDE
     Dosage: 12.5 MG, UNK
  7. ENTYVIO [Suspect]
     Active Substance: VEDOLIZUMAB
     Indication: COLITIS ULCERATIVE
     Dosage: 300 MG, UNK
     Route: 042
     Dates: start: 20160419
  8. AVAPRO [Concomitant]
     Active Substance: IRBESARTAN
     Dosage: 150 MG, UNK
  9. VITAMIN D [Concomitant]
     Active Substance: CHOLECALCIFEROL
     Dosage: UNK

REACTIONS (9)
  - Blood pressure increased [Not Recovered/Not Resolved]
  - Colitis ulcerative [Unknown]
  - Headache [Unknown]
  - Anaphylactic reaction [Recovered/Resolved]
  - Condition aggravated [Unknown]
  - Frequent bowel movements [Unknown]
  - Haematochezia [Unknown]
  - Infusion related reaction [Recovered/Resolved]
  - Defaecation urgency [Unknown]

NARRATIVE: CASE EVENT DATE: 20160419
